FAERS Safety Report 4754779-X (Version None)
Quarter: 2005Q3

REPORT INFORMATION
  Report Type: 
  Country: None (occurrence: None)
  Receive Date: 20050829
  Receipt Date: 20050615
  Transmission Date: 20060218
  Serious: Yes (Hospitalization)
  Sender: FDA-Public Use
  Company Number: 2005AP04107

PATIENT
  Age: 60 Year
  Sex: Female

DRUGS (2)
  1. OMEPRAZOLE [Suspect]
     Indication: GASTRIC ULCER
     Route: 048
     Dates: end: 20050818
  2. PRIMPERAN INJ [Concomitant]
     Indication: NAUSEA
     Dates: start: 20050301, end: 20050518

REACTIONS (9)
  - ANOREXIA [None]
  - CORONARY ARTERY SURGERY [None]
  - DEHYDRATION [None]
  - DEPRESSION [None]
  - DEPRESSIVE SYMPTOM [None]
  - MUSCULAR WEAKNESS [None]
  - NAUSEA [None]
  - POST PROCEDURAL COMPLICATION [None]
  - RENAL FAILURE ACUTE [None]
